FAERS Safety Report 7299066-3 (Version None)
Quarter: 2011Q1

REPORT INFORMATION
  Report Type: 
  Country: None (occurrence: None)
  Receive Date: 20110217
  Receipt Date: 20110211
  Transmission Date: 20110831
  Serious: Yes (Other)
  Sender: FDA-Public Use
  Company Number: US-ABBOTT-11P-163-0704615-00

PATIENT
  Sex: Female
  Weight: 99.88 kg

DRUGS (1)
  1. LUPRON DEPOT [Suspect]
     Indication: ENDOMETRIOSIS
     Dates: start: 20110131

REACTIONS (3)
  - DYSPNOEA [None]
  - ERYTHEMA [None]
  - OEDEMA PERIPHERAL [None]
